FAERS Safety Report 21623257 (Version 1)
Quarter: 2022Q4

REPORT INFORMATION
  Report Type: Report from Study
  Country: US (occurrence: US)
  Receive Date: 20221121
  Receipt Date: 20221121
  Transmission Date: 20230113
  Serious: Yes (Other)
  Sender: FDA-Public Use
  Company Number: US-ABBVIE-4207889

PATIENT
  Sex: Female

DRUGS (9)
  1. HUMIRA [Suspect]
     Active Substance: ADALIMUMAB
     Indication: Osteoporosis
     Dosage: FORM STRENGTH: 40 MILLIGRAM
     Route: 058
  2. TRIAMCINOLON CRE 0.5% [Concomitant]
     Indication: Product used for unknown indication
  3. DORZOLAMIDE SOL [Concomitant]
     Indication: Product used for unknown indication
     Dosage: FORM STRENGTH: 2 PERCENT
  4. MELOXICAM [Concomitant]
     Active Substance: MELOXICAM
     Indication: Product used for unknown indication
  5. FOLIC ACID [Concomitant]
     Active Substance: FOLIC ACID
     Indication: Product used for unknown indication
     Dosage: 1 MILLIGRAM
  6. BRIMONIDINE SOL 0.2-0.5% [Concomitant]
     Indication: Product used for unknown indication
  7. METHOTREXATE [Concomitant]
     Active Substance: METHOTREXATE
     Indication: Product used for unknown indication
     Dosage: 2500 MICROGRAM
  8. TRAVOPROST SOL 0.004% [Concomitant]
     Indication: Product used for unknown indication
  9. PREDNISOLONE SUS [Concomitant]
     Indication: Product used for unknown indication
     Dosage: FORM STRENGTH: 1 PERCENT

REACTIONS (1)
  - Skin cancer [Recovered/Resolved]

NARRATIVE: CASE EVENT DATE: 20190101
